FAERS Safety Report 8016263-X (Version None)
Quarter: 2011Q4

REPORT INFORMATION
  Report Type: 
  Country: None (occurrence: None)
  Receive Date: 20111230
  Receipt Date: 20111221
  Transmission Date: 20120403
  Serious: Yes (Life-Threatening, Hospitalization)
  Sender: FDA-Public Use
  Company Number: FR-MERCK-1112FRA00098

PATIENT
  Age: 65 Year
  Sex: Female
  Weight: 108 kg

DRUGS (7)
  1. GLIMEPIRIDE [Concomitant]
     Route: 048
  2. JANUVIA [Suspect]
     Route: 048
  3. JANUVIA [Suspect]
     Indication: TYPE 2 DIABETES MELLITUS
     Route: 048
     Dates: end: 20101227
  4. GLIMEPIRIDE [Concomitant]
     Indication: TYPE 2 DIABETES MELLITUS
     Route: 048
  5. METFORMIN [Concomitant]
     Indication: TYPE 2 DIABETES MELLITUS
     Route: 048
     Dates: end: 20101227
  6. INSULIN GLARGINE [Concomitant]
     Indication: TYPE 2 DIABETES MELLITUS
     Route: 065
     Dates: start: 20110318
  7. GLICLAZIDE [Concomitant]
     Indication: TYPE 2 DIABETES MELLITUS
     Route: 048

REACTIONS (1)
  - ACUTE PULMONARY OEDEMA [None]
